FAERS Safety Report 5867353-9 (Version None)
Quarter: 2008Q3

REPORT INFORMATION
  Report Type: 
  Country: None (occurrence: None)
  Receive Date: 20080902
  Receipt Date: 20080821
  Transmission Date: 20090109
  Serious: Yes (Disabling)
  Sender: FDA-Public Use
  Company Number: PHHY2008GB19159

PATIENT
  Age: 47 Year
  Sex: Female

DRUGS (5)
  1. OXCARBAZEPINE [Suspect]
     Indication: AFFECTIVE DISORDER
     Dosage: 300 MG
     Route: 048
     Dates: start: 20080719, end: 20080806
  2. LAMOTRIGINE [Concomitant]
     Indication: AFFECTIVE DISORDER
     Dosage: 150 MG, BID
     Route: 048
  3. LANSOPRAZOLE [Concomitant]
     Indication: AFFECTIVE DISORDER
     Dosage: 15 MG, UNK
     Route: 048
  4. LITHIUM CARBONATE [Concomitant]
     Indication: AFFECTIVE DISORDER
     Dosage: 1000 MG, UNK
     Route: 048
  5. OLANZAPINE [Suspect]
     Indication: AFFECTIVE DISORDER
     Dosage: 20 MG, UNK
     Route: 048

REACTIONS (4)
  - INFLUENZA LIKE ILLNESS [None]
  - LYMPHADENOPATHY [None]
  - PETECHIAE [None]
  - PYREXIA [None]
